FAERS Safety Report 10184589 (Version 3)
Quarter: 2014Q2

REPORT INFORMATION
  Report Type: Report from Study
  Country: CN (occurrence: CN)
  Receive Date: 20140521
  Receipt Date: 20140604
  Transmission Date: 20141212
  Serious: Yes (Other)
  Sender: FDA-Public Use
  Company Number: CN-BRISTOL-MYERS SQUIBB COMPANY-20639787

PATIENT
  Age: 23 Year
  Sex: Female
  Weight: 45 kg

DRUGS (2)
  1. ENTECAVIR [Suspect]
     Indication: CHRONIC HEPATITIS B
     Route: 048
     Dates: start: 20130128, end: 20140222
  2. TELBIVUDINE [Suspect]
     Indication: CHRONIC HEPATITIS B
     Route: 048
     Dates: start: 20140223

REACTIONS (2)
  - Abortion induced [Recovered/Resolved]
  - Pregnancy [Recovered/Resolved]
